FAERS Safety Report 24310501 (Version 2)
Quarter: 2024Q3

REPORT INFORMATION
  Report Type: Spontaneous
  Country: CN (occurrence: None)
  Receive Date: 20240912
  Receipt Date: 20240925
  Transmission Date: 20241017
  Serious: Yes (Hospitalization, Other)
  Sender: ACS DOBFAR
  Company Number: CN-ACS-20240335

PATIENT
  Age: 58 Year
  Sex: Female
  Weight: 41 kg

DRUGS (11)
  1. CEFTAZIDIME [Suspect]
     Active Substance: CEFTAZIDIME
     Indication: Pneumonia
     Dosage: CEFTAZIDIME (2G Q12H)
  2. CEFTAZIDIME [Suspect]
     Active Substance: CEFTAZIDIME
     Indication: Pneumonia
     Dosage: CEFTAZIDIME (2G Q12H) FOR 4 DAYS
  3. TINIDAZOLE [Concomitant]
     Active Substance: TINIDAZOLE
     Indication: Pneumonia
     Dosage: ()
  4. FLUCONAZOLE [Concomitant]
     Active Substance: FLUCONAZOLE
     Indication: Pneumonia
     Dosage: ()
  5. PIPERACILLIN AND TAZOBACTAM [Concomitant]
     Active Substance: PIPERACILLIN SODIUM\TAZOBACTAM SODIUM
     Indication: Pneumonia
     Dosage: ()
  6. PREDNISOLONE [Concomitant]
     Active Substance: PREDNISOLONE
     Indication: Large intestinal ulcer
     Dosage: DECREASED GRADUALLY FROM 60 TO 12.5 MG. ()
  7. PREDNISOLONE [Concomitant]
     Active Substance: PREDNISOLONE
     Indication: Large intestinal ulcer
     Dosage: 30 MG ONCE A DAY
     Route: 048
  8. MESALAMINE [Concomitant]
     Active Substance: MESALAMINE
     Indication: Large intestinal ulcer
     Dosage: ()
  9. MYCOPHENOLATE MOFETIL [Concomitant]
     Active Substance: MYCOPHENOLATE MOFETIL
     Indication: Large intestinal ulcer
     Dosage: ()
  10. THALIDOMIDE [Concomitant]
     Active Substance: THALIDOMIDE
     Indication: Large intestinal ulcer
     Dosage: ()
  11. METHYLPREDNISOLONE [Concomitant]
     Active Substance: METHYLPREDNISOLONE
     Indication: Cytomegalovirus infection

REACTIONS (1)
  - Drug reaction with eosinophilia and systemic symptoms [Not Recovered/Not Resolved]
